FAERS Safety Report 7522104-7 (Version None)
Quarter: 2011Q2

REPORT INFORMATION
  Report Type: 
  Country: None (occurrence: None)
  Receive Date: 20110603
  Receipt Date: 20110527
  Transmission Date: 20111010
  Serious: Yes (Hospitalization)
  Sender: FDA-Public Use
  Company Number: US-B.I. PHARMACEUTICALS,INC./RIDGEFIELD-2011-BP-11841BP

PATIENT
  Age: 71 Year
  Sex: Female
  Weight: 107.5 kg

DRUGS (18)
  1. MULTAQ [Suspect]
     Dosage: 800 MG
     Dates: start: 20110401
  2. FOLIC ACID [Concomitant]
  3. ASPIRIN [Concomitant]
     Dosage: 325 MG
  4. PRADAXA [Suspect]
     Indication: ATRIAL FLUTTER
     Dosage: 300 MG
     Route: 048
     Dates: start: 20110413
  5. CALCIUM PHOSPHATE [Concomitant]
  6. THYROID TAB [Concomitant]
     Dosage: 30 MCG
  7. NORCO [Concomitant]
  8. AMBIEN [Concomitant]
  9. VITAMIN D [Concomitant]
  10. VITAMIN B-12 [Concomitant]
  11. TOPROL-XL [Concomitant]
     Dosage: 50 MG
  12. VITAMIN B6 [Concomitant]
  13. LASIX [Concomitant]
     Dosage: 40 MG
  14. KLOR-CON [Concomitant]
     Dosage: 8 MEQ
  15. PRADAXA [Suspect]
     Indication: ATRIAL FIBRILLATION
  16. MAGNESIUM SULFATE [Concomitant]
  17. NEXIUM [Concomitant]
     Dosage: 40 MG
  18. PRISTIQ [Concomitant]
     Dosage: 100 MG

REACTIONS (3)
  - INTERNATIONAL NORMALISED RATIO ABNORMAL [None]
  - RENAL IMPAIRMENT [None]
  - BLOOD CREATININE ABNORMAL [None]
